FAERS Safety Report 6288036-X (Version None)
Quarter: 2009Q3

REPORT INFORMATION
  Report Type: 
  Country: None (occurrence: None)
  Receive Date: 20090729
  Receipt Date: 20090727
  Transmission Date: 20100115
  Serious: Yes (Hospitalization, Other)
  Sender: FDA-Public Use
  Company Number: US-TEVA-203693USA

PATIENT
  Age: 52 Year
  Sex: Female

DRUGS (1)
  1. HYDROCODONE BITARTRATE AND IBUPROFEN [Suspect]
     Indication: BACK PAIN
     Dosage: 15MG/400MG EVERY 4-6 HOURS
     Route: 048

REACTIONS (5)
  - BACTERIA BLOOD IDENTIFIED [None]
  - ESCHERICHIA INFECTION [None]
  - HAEMODIALYSIS [None]
  - PYELONEPHRITIS ACUTE [None]
  - RENAL FAILURE [None]
